FAERS Safety Report 8173500-9 (Version None)
Quarter: 2012Q1

REPORT INFORMATION
  Report Type: 
  Country: None (occurrence: None)
  Receive Date: 20120223
  Receipt Date: 20120213
  Transmission Date: 20120608
  Serious: Yes (Other)
  Sender: FDA-Public Use
  Company Number: 2011AP002996

PATIENT
  Age: 80 Year
  Sex: Female

DRUGS (10)
  1. BUMETANIDE [Concomitant]
  2. SPIRONOLACTONE [Concomitant]
  3. SIMVASTATIN [Concomitant]
  4. AMLODIPINE [Concomitant]
  5. FLUTICASONE PROPIONATE [Suspect]
     Indication: UPPER-AIRWAY COUGH SYNDROME
     Dosage: 100 UG;QD;NAS
     Route: 045
     Dates: start: 20110101
  6. FLUTICASONE PROPIONATE [Suspect]
     Indication: COUGH
     Dosage: 100 UG;QD;NAS
     Route: 045
     Dates: start: 20110101
  7. FLUTICASONE PROPIONATE [Suspect]
     Indication: UPPER-AIRWAY COUGH SYNDROME
     Dosage: 100 UG;QD;NAS
     Route: 045
     Dates: start: 20110917
  8. FLUTICASONE PROPIONATE [Suspect]
     Indication: COUGH
     Dosage: 100 UG;QD;NAS
     Route: 045
     Dates: start: 20110917
  9. FLUTICASONE PROPIONATE [Suspect]
     Indication: UPPER-AIRWAY COUGH SYNDROME
     Dosage: 100 UG;QD;NAS
     Route: 045
     Dates: end: 20111123
  10. FLUTICASONE PROPIONATE [Suspect]
     Indication: COUGH
     Dosage: 100 UG;QD;NAS
     Route: 045
     Dates: end: 20111123

REACTIONS (7)
  - NASAL CAVITY MASS [None]
  - TENDERNESS [None]
  - CHEILITIS [None]
  - SKIN EXFOLIATION [None]
  - EPISTAXIS [None]
  - NASAL DISCOMFORT [None]
  - NASAL DRYNESS [None]
